FAERS Safety Report 13245646 (Version 1)
Quarter: 2017Q1

REPORT INFORMATION
  Report Type: Spontaneous
  Country: MX (occurrence: MX)
  Receive Date: 20170217
  Receipt Date: 20170217
  Transmission Date: 20170428
  Serious: No
  Sender: FDA-Public Use
  Company Number: MX-PERNIX THERAPEUTICS-2016PT000046

PATIENT

DRUGS (1)
  1. CEDAX [Suspect]
     Active Substance: CEFTIBUTEN DIHYDRATE
     Indication: RESPIRATORY TRACT INFECTION
     Route: 048

REACTIONS (1)
  - Drug ineffective [Unknown]
